FAERS Safety Report 4902083-9 (Version None)
Quarter: 2006Q1

REPORT INFORMATION
  Report Type: 
  Country: None (occurrence: None)
  Receive Date: 20060206
  Receipt Date: 20060127
  Transmission Date: 20060701
  Serious: Yes (Other)
  Sender: FDA-Public Use
  Company Number: FR-GLAXOSMITHKLINE-B0408660A

PATIENT
  Age: 36 Year
  Sex: Female

DRUGS (8)
  1. ZIDOVUDINE [Suspect]
     Indication: HIV INFECTION
     Route: 065
  2. LAMIVUDINE [Suspect]
     Indication: HIV INFECTION
     Route: 065
     Dates: start: 19980201
  3. ABACAVIR [Suspect]
     Indication: HIV INFECTION
     Route: 065
     Dates: start: 19990901
  4. DIDANOSINE [Suspect]
     Indication: HIV INFECTION
     Route: 065
     Dates: start: 19960601, end: 19980201
  5. INDINAVIR [Suspect]
     Indication: HIV INFECTION
     Route: 065
     Dates: start: 19960601, end: 19980201
  6. STAVUDINE [Suspect]
     Indication: HIV INFECTION
     Route: 065
     Dates: start: 19980201, end: 19990901
  7. NELFINAVIR [Suspect]
     Indication: HIV INFECTION
     Route: 065
     Dates: start: 19980201, end: 19981101
  8. EFAVIRENZ [Suspect]
     Indication: HIV INFECTION
     Route: 065
     Dates: start: 19981101, end: 20001001

REACTIONS (21)
  - ADRENAL INSUFFICIENCY [None]
  - AFFECTIVE DISORDER [None]
  - ALOPECIA [None]
  - AMENORRHOEA [None]
  - ASTHENIA [None]
  - BLOOD CORTICOTROPHIN DECREASED [None]
  - BLOOD CORTISOL DECREASED [None]
  - BLOOD FOLLICLE STIMULATING HORMONE INCREASED [None]
  - BLOOD THYROID STIMULATING HORMONE INCREASED [None]
  - CONSTIPATION [None]
  - DIABETES MELLITUS INSULIN-DEPENDENT [None]
  - DIARRHOEA [None]
  - HYPERSOMNIA [None]
  - HYPOTENSION [None]
  - HYPOTHYROIDISM [None]
  - INSULIN RESISTANCE [None]
  - LIPOATROPHY [None]
  - LIPODYSTROPHY ACQUIRED [None]
  - MITOCHONDRIAL CYTOPATHY [None]
  - NEPHROLITHIASIS [None]
  - PREMATURE MENOPAUSE [None]
